FAERS Safety Report 5717232-2 (Version None)
Quarter: 2008Q2

REPORT INFORMATION
  Report Type: 
  Country: None (occurrence: None)
  Receive Date: 20080424
  Receipt Date: 20080415
  Transmission Date: 20081010
  Serious: Yes (Life-Threatening, Hospitalization)
  Sender: FDA-Public Use
  Company Number: FR-PFIZER INC-2008035046

PATIENT
  Sex: Male

DRUGS (6)
  1. ATARAX [Suspect]
     Indication: ANAESTHESIA
     Dosage: DAILY DOSE:100MG-FREQ:ONCE
     Route: 048
     Dates: start: 20080311, end: 20080311
  2. KETAMINE HYDROCHLORIDE [Suspect]
     Indication: ANAESTHESIA
     Dosage: DAILY DOSE:20MG-FREQ:ONCE
     Route: 042
     Dates: start: 20080311, end: 20080311
  3. PROPOFOL ^FRESENIUS^ [Suspect]
     Indication: ANAESTHESIA
     Dosage: DAILY DOSE:200MG-FREQ:ONCE
     Route: 042
     Dates: start: 20080311, end: 20080311
  4. ATRACURIUM BESYLATE [Suspect]
     Indication: ANAESTHESIA
     Dosage: DAILY DOSE:75MG-FREQ:ONCE
     Route: 042
     Dates: start: 20080311, end: 20080311
  5. MIDAZOLAM HCL [Suspect]
     Indication: ANAESTHESIA
     Dosage: DAILY DOSE:1MG-FREQ:ONCE
     Route: 042
     Dates: start: 20080311, end: 20080311
  6. CEFAMANDOLE [Suspect]
     Indication: ANAESTHESIA
     Dosage: DAILY DOSE:1.5GRAM-FREQ:ONCE
     Route: 042
     Dates: start: 20080311, end: 20080311

REACTIONS (3)
  - ANAPHYLACTIC SHOCK [None]
  - BRONCHOSPASM [None]
  - TRANSIENT ISCHAEMIC ATTACK [None]
